FAERS Safety Report 13007052 (Version 1)
Quarter: 2016Q4

REPORT INFORMATION
  Report Type: Spontaneous
  Country: FR (occurrence: FR)
  Receive Date: 20161207
  Receipt Date: 20161207
  Transmission Date: 20170207
  Serious: Yes (Other)
  Sender: FDA-Public Use
  Company Number: PHHY2016FR165528

PATIENT
  Age: 73 Year
  Sex: Female

DRUGS (4)
  1. ZARZIO [Suspect]
     Active Substance: FILGRASTIM
     Indication: PRODUCT USED FOR UNKNOWN INDICATION
     Route: 065
     Dates: start: 20161015
  2. VANCOMYCIN [Suspect]
     Active Substance: VANCOMYCIN
     Indication: INFECTION
     Route: 065
     Dates: start: 20160921, end: 20161030
  3. MEROPENEM. [Suspect]
     Active Substance: MEROPENEM
     Indication: INFECTION
     Route: 065
     Dates: start: 20160926, end: 20161030
  4. COLIMYCINE [Suspect]
     Active Substance: COLISTIMETHATE SODIUM
     Indication: INFECTION
     Dosage: 1000000 IU, TID
     Route: 065
     Dates: start: 20160926, end: 20161030

REACTIONS (2)
  - Rash morbilliform [Recovered/Resolved]
  - Erythema [Recovered/Resolved]

NARRATIVE: CASE EVENT DATE: 20161018
